FAERS Safety Report 8507112-1 (Version None)
Quarter: 2012Q3

REPORT INFORMATION
  Report Type: 
  Country: None (occurrence: None)
  Receive Date: 20120712
  Receipt Date: 20120709
  Transmission Date: 20120928
  Serious: Yes (Hospitalization, Other)
  Sender: FDA-Public Use
  Company Number: US-TEVA-347759USA

PATIENT
  Age: 68 Year
  Sex: Female
  Weight: 84 kg

DRUGS (28)
  1. SUXAMETHONIUM CHLORIDE [Concomitant]
     Indication: INDUCTION OF ANAESTHESIA
     Dosage: 120MG
  2. MULTI-VITAMIN [Concomitant]
  3. ONDANSETRON [Suspect]
     Indication: INDUCTION OF ANAESTHESIA
     Dosage: 4MG TOWARDS THE END OF SURGERY
  4. PAROXETINE HYDROCHLORIDE [Suspect]
  5. LIPITOR [Concomitant]
  6. CLONAZEPAM [Concomitant]
  7. FLUDROCORTISONE ACETATE [Concomitant]
  8. CALCIUM [Concomitant]
  9. HYDROMORPHONE HCL [Concomitant]
     Dosage: 1.0MG TOWARDS THE END OF SURGERY; THEN 0.4MG POSTOPERATIVELY
  10. BUPROPION HCL [Suspect]
  11. LEVOTHYROXINE SODIUM [Concomitant]
  12. LISINOPRIL [Concomitant]
  13. OXYCODONE HCL [Concomitant]
  14. SENNA ALEXANDRINA [Concomitant]
  15. DESFLURANE [Concomitant]
     Indication: MAINTENANCE OF ANAESTHESIA
     Dosage: 3.9-7.2% END-TIDAL DESFLURANE IN 50/50 NITROUS OXIDE/OXYGEN
  16. HYDROMORPHONE HCL [Concomitant]
     Dosage: 0.4MG POSTOPERATIVELY
     Route: 065
  17. FENTANYL [Suspect]
     Indication: PAIN
     Dosage: 50 MICROG TOWARDS THE END OF SURGERY; THEN 100 MICROG POSTOPERATIVELY
     Route: 065
  18. FENTANYL [Suspect]
     Dosage: 100 MICROG POSTOPERATIVELY
     Route: 065
  19. DULOXETINE HYDROCHLORIDE [Suspect]
  20. GABAPENTIN [Concomitant]
  21. OMEPRAZOLE [Concomitant]
  22. TIAGABINE HYDROCHLORIDE [Concomitant]
  23. NITROUS OXIDE W/ OXYGEN [Concomitant]
     Indication: MAINTENANCE OF ANAESTHESIA
     Dosage: 50/50 NITROUS OXIDE/OXYGEN
  24. DYAZIDE [Concomitant]
  25. MIDAZOLAM [Concomitant]
     Indication: PREMEDICATION
  26. FENTANYL [Suspect]
     Indication: INDUCTION OF ANAESTHESIA
     Dosage: 100 MICROG; THEN 50 MICROG TOWARDS THE END OF SURGERY
     Route: 065
  27. ALENDRONATE SODIUM [Concomitant]
  28. PROPOFOL [Concomitant]
     Indication: INDUCTION OF ANAESTHESIA
     Dosage: 200MG

REACTIONS (1)
  - SEROTONIN SYNDROME [None]
